FAERS Safety Report 18742186 (Version 1)
Quarter: 2021Q1

REPORT INFORMATION
  Report Type: Spontaneous
  Country: PL (occurrence: PL)
  Receive Date: 20210114
  Receipt Date: 20210114
  Transmission Date: 20210419
  Serious: Yes (Other)
  Sender: FDA-Public Use
  Company Number: PL-PFIZER INC-2021011904

PATIENT
  Age: 70 Year
  Sex: Female

DRUGS (10)
  1. CARBOPLATIN. [Suspect]
     Active Substance: CARBOPLATIN
     Indication: HER2 POSITIVE BREAST CANCER
     Dosage: 5AUC 1 DAY
     Route: 065
     Dates: start: 20160831, end: 20170520
  2. CAPECITABINE. [Suspect]
     Active Substance: CAPECITABINE
     Indication: HER2 POSITIVE BREAST CANCER
     Dosage: UNK
     Route: 048
     Dates: start: 20150306, end: 20160822
  3. PACLITAXEL. [Suspect]
     Active Substance: PACLITAXEL
     Dosage: UNK
     Route: 065
     Dates: end: 201502
  4. TRASTUZUMAB. [Suspect]
     Active Substance: TRASTUZUMAB
     Dosage: AFTER 3 COURSES, TREATMENT WAS DISCONTINUED DUE TO UNACCEPTABLE TOXICITY. 17 MONTHS
     Route: 042
     Dates: start: 20130927, end: 201502
  5. KADCYLA [Suspect]
     Active Substance: ADO-TRASTUZUMAB EMTANSINE
     Indication: HER2 POSITIVE BREAST CANCER
     Dosage: RECEIVED 9 COURSES
     Route: 065
     Dates: start: 202002
  6. PACLITAXEL. [Suspect]
     Active Substance: PACLITAXEL
     Indication: HER2 POSITIVE BREAST CANCER
     Dosage: 1?8 DAYS IN CYCLES EVERY 3 WEEKS
     Route: 065
     Dates: start: 20130927
  7. LAPATINIB [Suspect]
     Active Substance: LAPATINIB
     Indication: HER2 POSITIVE BREAST CANCER
     Dosage: UNK
     Route: 065
     Dates: start: 20150306, end: 20160822
  8. CLARZOLE [Suspect]
     Active Substance: LETROZOLE
     Indication: HER2 POSITIVE BREAST CANCER
     Dosage: 2.5 MG
     Route: 065
     Dates: start: 201911, end: 202006
  9. FASLODEX [Suspect]
     Active Substance: FULVESTRANT
     Indication: HER2 POSITIVE BREAST CANCER
     Dosage: UNK
     Route: 065
     Dates: start: 201705
  10. NAVELBIN [Suspect]
     Active Substance: VINORELBINE TARTRATE
     Indication: HER2 POSITIVE BREAST CANCER
     Dosage: 60 MG/M2 (1?8 DAYS)
     Route: 065
     Dates: start: 20160831, end: 20170520

REACTIONS (7)
  - Haematotoxicity [Unknown]
  - Diarrhoea [Unknown]
  - Polyneuropathy [Unknown]
  - Cerebral infarction [Unknown]
  - Liver disorder [Unknown]
  - Neoplasm progression [Unknown]
  - Palmar-plantar erythrodysaesthesia syndrome [Unknown]

NARRATIVE: CASE EVENT DATE: 20150101
